FAERS Safety Report 7951746-X (Version None)
Quarter: 2011Q4

REPORT INFORMATION
  Report Type: 
  Country: None (occurrence: None)
  Receive Date: 20111130
  Receipt Date: 20111130
  Transmission Date: 20120403
  Serious: Yes (Hospitalization)
  Sender: FDA-Public Use
  Company Number: None

PATIENT
  Sex: Male
  Weight: 86.6 kg

DRUGS (7)
  1. POMALIDOMIDE 1MG CAPSULES CELGENE [Suspect]
     Indication: MULTIPLE MYELOMA
     Dosage: 3MG DAILY X 21 DAYS PO
     Route: 048
     Dates: start: 20111031, end: 20111120
  2. ASPIRIN [Concomitant]
  3. DIFLUCAN [Concomitant]
  4. BACTRIM [Concomitant]
  5. DECADRON [Concomitant]
  6. ACYCLOVIR [Concomitant]
  7. CALCIUM CARBONATE [Concomitant]

REACTIONS (1)
  - MENTAL STATUS CHANGES [None]
